FAERS Safety Report 5345298-0 (Version None)
Quarter: 2007Q2

REPORT INFORMATION
  Report Type: 
  Country: None (occurrence: None)
  Receive Date: 20070601
  Receipt Date: 20070522
  Transmission Date: 20071010
  Serious: No
  Sender: FDA-Public Use
  Company Number: 233773K07USA

PATIENT
  Age: 26 Year
  Sex: Female
  Weight: 86.637 kg

DRUGS (7)
  1. REBIF [Suspect]
     Indication: MULTIPLE SCLEROSIS
     Dosage: 22 MCG, 3 IN 1 WEEKS, SUBCUTANEOUS
     Route: 058
     Dates: start: 20061101
  2. NOVANTRONE [Suspect]
     Indication: MULTIPLE SCLEROSIS
     Dosage: 12 MG/M2, ONCE, INTRAVENOUS
     Route: 042
     Dates: start: 20061101, end: 20061101
  3. NOVANTRONE [Suspect]
     Indication: MULTIPLE SCLEROSIS
     Dosage: 12 MG/M2, ONCE, INTRAVENOUS
     Route: 042
     Dates: start: 20070201, end: 20070201
  4. HYDROCODONE (HYDROCODONE) [Concomitant]
  5. LEVOXYL [Concomitant]
  6. PROVIGIL [Concomitant]
  7. DETROL [Concomitant]

REACTIONS (3)
  - BACK DISORDER [None]
  - CONDITION AGGRAVATED [None]
  - FRACTURE [None]
